FAERS Safety Report 6808737-1 (Version None)
Quarter: 2010Q2

REPORT INFORMATION
  Report Type: 
  Country: None (occurrence: None)
  Receive Date: 20100629
  Receipt Date: 20090826
  Transmission Date: 20101027
  Serious: No
  Sender: FDA-Public Use
  Company Number: US-PFIZER INC-2009260229

PATIENT
  Sex: Male

DRUGS (5)
  1. XANAX [Suspect]
     Indication: ANXIETY
     Dosage: 1 MG, 4X/DAY
  2. ALDACTONE [Suspect]
     Indication: DRUG USE FOR UNKNOWN INDICATION
  3. KLONOPIN [Suspect]
     Indication: TARSAL TUNNEL SYNDROME
     Dosage: 1 MG, 3X/DAY
     Route: 048
     Dates: start: 20020101
  4. KLONOPIN [Suspect]
     Indication: NEUROPATHY PERIPHERAL
  5. VALIUM [Suspect]
     Indication: DRUG USE FOR UNKNOWN INDICATION

REACTIONS (12)
  - ABDOMINAL PAIN [None]
  - ANXIETY [None]
  - DIZZINESS [None]
  - DRUG WITHDRAWAL SYNDROME [None]
  - DYSPHORIA [None]
  - FIBROMYALGIA [None]
  - HEADACHE [None]
  - OEDEMA PERIPHERAL [None]
  - PAIN [None]
  - PAIN IN JAW [None]
  - PARADOXICAL DRUG REACTION [None]
  - URTICARIA [None]
